FAERS Safety Report 8172527-0 (Version None)
Quarter: 2012Q1

REPORT INFORMATION
  Report Type: 
  Country: None (occurrence: None)
  Receive Date: 20120227
  Receipt Date: 20120227
  Transmission Date: 20120608
  Serious: Yes (Hospitalization)
  Sender: FDA-Public Use
  Company Number: None

PATIENT
  Age: 51 Year
  Sex: Female
  Weight: 74.8 kg

DRUGS (9)
  1. OXYCODONE HCL [Concomitant]
  2. NEURONTIN [Concomitant]
  3. ACETAMINOPHEN [Concomitant]
  4. ADRIAMYCIN PFS [Concomitant]
  5. CYCLOPHOSPHAMIDE [Concomitant]
  6. TAXOL [Suspect]
     Indication: BREAST CANCER
     Dates: end: 20100520
  7. IBUPROFEN TABLETS [Concomitant]
  8. XANAX [Concomitant]
  9. CELEXA [Concomitant]

REACTIONS (2)
  - INTERNATIONAL NORMALISED RATIO INCREASED [None]
  - ACUTE HEPATIC FAILURE [None]
